FAERS Safety Report 23665209 (Version 1)
Quarter: 2024Q1

REPORT INFORMATION
  Report Type: Spontaneous
  Country: US (occurrence: US)
  Receive Date: 20240322
  Receipt Date: 20240322
  Transmission Date: 20240409
  Serious: Yes (Life-Threatening)
  Sender: FDA-Public Use
  Company Number: US-MALLINCKRODT-MNK202401886

PATIENT
  Age: 48 Year
  Sex: Female

DRUGS (2)
  1. NITRIC OXIDE [Suspect]
     Active Substance: NITRIC OXIDE
     Indication: Pulmonary hypertension
     Dosage: 40 PPM, RESPIRATORY
     Route: 055
     Dates: start: 20240311, end: 202403
  2. NITRIC OXIDE [Suspect]
     Active Substance: NITRIC OXIDE
     Dosage: 40 PPM, RESPIRATORY
     Route: 055
     Dates: start: 202403

REACTIONS (4)
  - Hypotension [Recovered/Resolved]
  - Heart rate increased [Unknown]
  - Pulmonary arterial pressure increased [Recovered/Resolved]
  - Device issue [Unknown]

NARRATIVE: CASE EVENT DATE: 20240313
